FAERS Safety Report 23417086 (Version 1)
Quarter: 2024Q1

REPORT INFORMATION
  Report Type: Spontaneous
  Country: CA (occurrence: CA)
  Receive Date: 20240118
  Receipt Date: 20240118
  Transmission Date: 20240410
  Serious: Yes (Other)
  Sender: FDA-Public Use
  Company Number: CA-SANDOZ-SDZ2024CA005555

PATIENT
  Age: 39 Year
  Sex: Male

DRUGS (1)
  1. ERELZI [Suspect]
     Active Substance: ETANERCEPT-SZZS
     Indication: Rheumatoid arthritis
     Dosage: 50 MG
     Route: 058

REACTIONS (3)
  - Injection site haemorrhage [Recovering/Resolving]
  - Injection site reaction [Recovering/Resolving]
  - Product quality issue [Recovering/Resolving]
